FAERS Safety Report 10778643 (Version 4)
Quarter: 2015Q1

REPORT INFORMATION
  Report Type: Spontaneous
  Country: US (occurrence: US)
  Receive Date: 20150210
  Receipt Date: 20150316
  Transmission Date: 20150721
  Serious: Yes (Hospitalization, Other)
  Sender: FDA-Public Use
  Company Number: US-AMGEN-USASL2015011205

PATIENT
  Age: 70 Year
  Sex: Female

DRUGS (2)
  1. COUMADIN [Concomitant]
     Active Substance: WARFARIN SODIUM
     Dosage: UNK
  2. ENBREL [Suspect]
     Active Substance: ETANERCEPT
     Indication: RHEUMATOID ARTHRITIS
     Dosage: 50 MG, QWK
     Route: 065
     Dates: start: 20140623, end: 20150123

REACTIONS (17)
  - Malaise [Unknown]
  - Urinary tract infection [Unknown]
  - Loss of consciousness [Not Recovered/Not Resolved]
  - Chest discomfort [Recovered/Resolved]
  - Head discomfort [Not Recovered/Not Resolved]
  - Eating disorder [Recovered/Resolved]
  - Injection site pain [Recovered/Resolved]
  - Injection site bruising [Recovered/Resolved]
  - Oesophageal obstruction [Recovered/Resolved]
  - Pericarditis [Recovered/Resolved]
  - Hypotension [Unknown]
  - Dysphagia [Recovered/Resolved]
  - Cough [Not Recovered/Not Resolved]
  - Anaemia [Unknown]
  - Syncope [Unknown]
  - Fall [Not Recovered/Not Resolved]
  - Injection site erythema [Recovered/Resolved]

NARRATIVE: CASE EVENT DATE: 2014
